FAERS Safety Report 4952713-0 (Version None)
Quarter: 2006Q1

REPORT INFORMATION
  Report Type: 
  Country: None (occurrence: None)
  Receive Date: 20060320
  Receipt Date: 20060309
  Transmission Date: 20060701
  Serious: Yes (Other)
  Sender: FDA-Public Use
  Company Number: HQWYE296910MAR06

PATIENT
  Sex: Male

DRUGS (1)
  1. PREMPRO [Suspect]
     Indication: HORMONE REPLACEMENT THERAPY

REACTIONS (4)
  - BREAST MASS [None]
  - GALLBLADDER INJURY [None]
  - RENAL INJURY [None]
  - THROMBOSIS [None]
